FAERS Safety Report 6468985-X (Version None)
Quarter: 2009Q4

REPORT INFORMATION
  Report Type: 
  Country: None (occurrence: None)
  Receive Date: 20091203
  Receipt Date: 20091124
  Transmission Date: 20100525
  Serious: Yes (Hospitalization)
  Sender: FDA-Public Use
  Company Number: CA-JNJFOC-20091006819

PATIENT
  Sex: Male
  Weight: 68.9 kg

DRUGS (2)
  1. REMICADE [Suspect]
     Indication: CROHN'S DISEASE
     Route: 042
     Dates: start: 20090609
  2. SOLU-CORTEF [Concomitant]
     Indication: PREMEDICATION
     Route: 065

REACTIONS (1)
  - PULMONARY TUBERCULOSIS [None]
